FAERS Safety Report 9085779 (Version 1)
Quarter: 2013Q1

REPORT INFORMATION
  Report Type: Spontaneous
  Country: US (occurrence: US)
  Receive Date: 20130131
  Receipt Date: 20130131
  Transmission Date: 20140127
  Serious: Yes (Other)
  Sender: FDA-Public Use
  Company Number: US-B.I. PHARMACEUTICALS,INC./RIDGEFIELD-2013-BI-01919GD

PATIENT
  Age: 53 Year
  Sex: Male

DRUGS (4)
  1. CLONIDINE [Suspect]
     Indication: POST-TRAUMATIC STRESS DISORDER
     Dosage: STARTED AT 0.05 MG THEN GRADUALLY TITRATED TO 0.15 MG
  2. CLONIDINE [Suspect]
     Indication: DEPRESSION
  3. SERTRALINE [Suspect]
     Indication: POST-TRAUMATIC STRESS DISORDER
  4. SERTRALINE [Suspect]
     Indication: DEPRESSION

REACTIONS (2)
  - Hallucination, auditory [Recovered/Resolved]
  - Drug effect incomplete [Unknown]
